FAERS Safety Report 9338426 (Version 1)
Quarter: 2013Q2

REPORT INFORMATION
  Report Type: Spontaneous
  Country: US (occurrence: None)
  Receive Date: 20130605
  Receipt Date: 20130605
  Transmission Date: 20140414
  Serious: No
  Sender: FDA-Public Use
  Company Number: None

PATIENT
  Age: 68 None
  Sex: Female
  Weight: 68.04 kg

DRUGS (17)
  1. ALENDRONATE SODIUM [Suspect]
     Indication: OSTEOPOROSIS
     Dosage: 1 PILL ONCE WEEKLY BY MOUTH
     Route: 048
     Dates: start: 20130301, end: 20130315
  2. CHOLESTEROL [Concomitant]
  3. PREVASTATIN [Concomitant]
  4. UBIQUINOL COQ 10 [Concomitant]
  5. CALCIUM [Concomitant]
  6. VITAMIN D-3 [Concomitant]
  7. BAYER ASPIRIN [Concomitant]
  8. B-12 [Concomitant]
  9. CLARITIN [Concomitant]
  10. PRVASTATIN [Concomitant]
  11. PROBIOTIC [Concomitant]
  12. CENTRUM SILVER MULTIVITAMIN [Concomitant]
  13. CALCIUM [Concomitant]
  14. POTASSIUM [Concomitant]
  15. MAGNESIUM MALATE [Concomitant]
  16. N-ACETYLI-2-CYSTEINE [Concomitant]
  17. ACTONEL [Concomitant]

REACTIONS (4)
  - Arthralgia [None]
  - Back pain [None]
  - Ligament pain [None]
  - Myositis [None]
